FAERS Safety Report 5787183-6 (Version None)
Quarter: 2008Q2

REPORT INFORMATION
  Report Type: 
  Country: None (occurrence: None)
  Receive Date: 20080625
  Receipt Date: 20080617
  Transmission Date: 20081010
  Serious: Yes (Life-Threatening)
  Sender: FDA-Public Use
  Company Number: JP-BRISTOL-MYERS SQUIBB COMPANY-14239099

PATIENT
  Age: 34 Year
  Sex: Female

DRUGS (4)
  1. ABILIFY [Suspect]
     Indication: SCHIZOPHRENIA
     Dosage: 6MG FROM 24-APR-2008 TO 10-JUN-2008; INCREASED TO 18MG FROM 11-JUN-2008 TO 17-JUN-2008.
     Route: 048
     Dates: start: 20080424, end: 20080617
  2. FAMOTIDINE [Suspect]
     Route: 065
     Dates: start: 20080609, end: 20080616
  3. RISPERDAL [Concomitant]
     Indication: SCHIZOPHRENIA
     Dosage: 12MG ON 24-APR-2008
  4. CHLORPROMAZINE HCL [Concomitant]
     Dates: start: 20080609

REACTIONS (1)
  - NEUTROPENIA [None]
